FAERS Safety Report 19742269 (Version 2)
Quarter: 2021Q3

REPORT INFORMATION
  Report Type: Spontaneous
  Country: JP (occurrence: JP)
  Receive Date: 20210825
  Receipt Date: 20210902
  Transmission Date: 20211014
  Serious: Yes (Other)
  Sender: FDA-Public Use
  Company Number: PHJP2019JP004921

PATIENT
  Age: 19 Year
  Sex: Male
  Weight: 56.5 kg

DRUGS (5)
  1. PAZOPANIB [Suspect]
     Active Substance: PAZOPANIB
     Dosage: 400 MG
     Route: 048
  2. PAZOPANIB [Suspect]
     Active Substance: PAZOPANIB
     Dosage: 600 MG
     Route: 048
  3. PAZOPANIB [Suspect]
     Active Substance: PAZOPANIB
     Indication: EWING^S SARCOMA
     Dosage: 800 MG
     Route: 048
  4. PAZOPANIB [Suspect]
     Active Substance: PAZOPANIB
     Dosage: 200 MG
     Route: 048
  5. PAZOPANIB [Suspect]
     Active Substance: PAZOPANIB
     Dosage: 400 UNK
     Route: 048

REACTIONS (8)
  - Hypothyroidism [Unknown]
  - Metastases to lung [Unknown]
  - Decreased appetite [Unknown]
  - Pneumothorax [Unknown]
  - Malaise [Recovering/Resolving]
  - Infection [Unknown]
  - Malignant neoplasm progression [Unknown]
  - Product use in unapproved indication [Unknown]
